FAERS Safety Report 8315497-4 (Version None)
Quarter: 2012Q2

REPORT INFORMATION
  Report Type: 
  Country: None (occurrence: None)
  Receive Date: 20120426
  Receipt Date: 20120412
  Transmission Date: 20120825
  Serious: Yes (Other)
  Sender: FDA-Public Use
  Company Number: CHPA2012US009279

PATIENT
  Age: 53 Year
  Sex: Male

DRUGS (1)
  1. PHENYLEPHRINE HCL [Suspect]
     Indication: SINUS CONGESTION
     Dosage: UNK, 3 TO 4 TIMES DAILY
     Route: 045
     Dates: start: 19870101

REACTIONS (3)
  - INCORRECT DRUG ADMINISTRATION DURATION [None]
  - DRUG DEPENDENCE [None]
  - NASOPHARYNGITIS [None]
